FAERS Safety Report 4587915-9 (Version None)
Quarter: 2005Q1

REPORT INFORMATION
  Report Type: 
  Country: None (occurrence: None)
  Receive Date: 20050219
  Receipt Date: 20050215
  Transmission Date: 20050727
  Serious: Yes (Other)
  Sender: FDA-Public Use
  Company Number: PHEH2005US02090

PATIENT
  Age: 2 Year
  Sex: Female

DRUGS (2)
  1. PROTOPIC [Concomitant]
  2. ELIDEL [Suspect]
     Indication: DERMATITIS ATOPIC
     Dosage: UNK, QD
     Route: 061
     Dates: start: 20021018

REACTIONS (1)
  - LYMPHOMA [None]
